FAERS Safety Report 6894468-9 (Version None)
Quarter: 2010Q3

REPORT INFORMATION
  Report Type: 
  Country: None (occurrence: None)
  Receive Date: 20100728
  Receipt Date: 20100714
  Transmission Date: 20110219
  Serious: No
  Sender: FDA-Public Use
  Company Number: 010421

PATIENT
  Age: 49 Year
  Sex: Male

DRUGS (1)
  1. PLETAL [Suspect]
     Dosage: ORAL
     Route: 048
     Dates: start: 20090401, end: 20090401

REACTIONS (2)
  - HAEMORRHAGIC ANAEMIA [None]
  - OESOPHAGEAL HAEMORRHAGE [None]
